FAERS Safety Report 7729907-4 (Version None)
Quarter: 2011Q3

REPORT INFORMATION
  Report Type: 
  Country: None (occurrence: None)
  Receive Date: 20110906
  Receipt Date: 20110830
  Transmission Date: 20111222
  Serious: Yes (Other)
  Sender: FDA-Public Use
  Company Number: ES-ROCHE-800125

PATIENT
  Age: 51 Year
  Sex: Male

DRUGS (2)
  1. PEGASYS [Suspect]
     Dosage: 4 PREFILLED SYRINGES.
     Route: 058
     Dates: start: 20101018
  2. REBETOL [Suspect]
     Dosage: 140 HARD CAPSULES.
     Route: 048
     Dates: start: 20101018

REACTIONS (5)
  - LEUKOPENIA [None]
  - NEUTROPENIA [None]
  - ANAEMIA [None]
  - ASTHENIA [None]
  - THROMBOCYTOPENIA [None]
